FAERS Safety Report 5084978-1 (Version None)
Quarter: 2006Q3

REPORT INFORMATION
  Report Type: 
  Country: None (occurrence: None)
  Receive Date: 20060814
  Receipt Date: 20060728
  Transmission Date: 20061208
  Serious: Yes (Other)
  Sender: FDA-Public Use
  Company Number: US200607005416

PATIENT
  Age: 56 Year
  Sex: Male

DRUGS (2)
  1. GEMZAR [Suspect]
     Indication: NON-SMALL CELL LUNG CANCER
     Dosage: 1800 MG INTRAVENOUS
     Route: 042
     Dates: start: 20060316
  2. CARBOPLATIN [Concomitant]

REACTIONS (1)
  - THROMBOSIS [None]
